FAERS Safety Report 3757539 (Version 9)
Quarter: 2018Q2

REPORT INFORMATION
  Report Type: Spontaneous
  Country: JP (occurrence: JP)
  Receive Date: 20020125
  Receipt Date: 20180415
  Transmission Date: 20180711
  Serious: Yes (Death, Hospitalization)
  Sender: FDA-Public Use
  Company Number: PHBS2002JP01027

PATIENT
  Age: 76 Year
  Sex: Female
  Weight: 46 kg

DRUGS (6)
  1. GLIVEC [Suspect]
     Active Substance: IMATINIB MESYLATE
     Indication: CHRONIC MYELOID LEUKAEMIA
     Dosage: 400 MG, QD
     Route: 048
     Dates: start: 20011203, end: 20020126
  2. LEBENIN [Concomitant]
     Active Substance: LACTOBACILLUS ACIDOPHILUS\STREPTOCOCCUS FAECAIS
     Indication: PRODUCT USED FOR UNKNOWN INDICATION
     Route: 065
  3. GLIVEC [Suspect]
     Active Substance: IMATINIB MESYLATE
     Dosage: 300 MG, QD
     Route: 048
     Dates: start: 20020207, end: 20020306
  4. GLIVEC [Suspect]
     Active Substance: IMATINIB MESYLATE
     Dosage: 200 MG, QD
     Route: 048
     Dates: start: 20020307, end: 20020322
  5. GLIVEC [Suspect]
     Active Substance: IMATINIB MESYLATE
     Route: 048
     Dates: start: 20011213, end: 20020126
  6. ADALAT CC [Concomitant]
     Active Substance: NIFEDIPINE
     Indication: PRODUCT USED FOR UNKNOWN INDICATION
     Route: 065
     Dates: start: 20001228

REACTIONS (20)
  - Pericardial effusion [Unknown]
  - Platelet count decreased [Not Recovered/Not Resolved]
  - Rash [Recovering/Resolving]
  - Ventricular hypokinesia [Fatal]
  - Torsade de pointes [Fatal]
  - Electrocardiogram QT prolonged [Fatal]
  - C-reactive protein increased [Unknown]
  - White blood cell count decreased [Not Recovered/Not Resolved]
  - Thrombocytopenia [Recovering/Resolving]
  - Ventricular fibrillation [Fatal]
  - Ventricular tachycardia [Fatal]
  - Dyspnoea [Fatal]
  - Herpes zoster [Recovering/Resolving]
  - Pain in extremity [Recovering/Resolving]
  - Eyelid oedema [Recovered/Resolved]
  - Interstitial lung disease [Recovering/Resolving]
  - Leukopenia [Recovering/Resolving]
  - Arrhythmia [Fatal]
  - Depressed level of consciousness [Fatal]
  - Pleural effusion [Unknown]

NARRATIVE: CASE EVENT DATE: 20020104
